FAERS Safety Report 4742853-3 (Version None)
Quarter: 2005Q3

REPORT INFORMATION
  Report Type: 
  Country: None (occurrence: None)
  Receive Date: 20050811
  Receipt Date: 20050729
  Transmission Date: 20060218
  Serious: Yes (Hospitalization)
  Sender: FDA-Public Use
  Company Number: 2005SE04419

PATIENT
  Age: 26735 Day
  Sex: Female

DRUGS (5)
  1. SEROQUEL [Suspect]
     Indication: PSYCHOTIC DISORDER
     Route: 048
     Dates: start: 20050201, end: 20050515
  2. TICLID [Suspect]
     Indication: CEREBRAL ISCHAEMIA
     Route: 048
     Dates: start: 20041201, end: 20050407
  3. EUTIROX [Concomitant]
     Route: 048
  4. PARIET [Concomitant]
     Route: 048
  5. LAROXIL [Concomitant]
     Route: 048

REACTIONS (4)
  - HYPOALBUMINAEMIA [None]
  - LEUKOPENIA [None]
  - MYELODYSPLASTIC SYNDROME [None]
  - NEUTROPENIA [None]
